FAERS Safety Report 5920090-4 (Version None)
Quarter: 2008Q4

REPORT INFORMATION
  Report Type: 
  Country: None (occurrence: None)
  Receive Date: 20081016
  Receipt Date: 20081013
  Transmission Date: 20090506
  Serious: Yes (Hospitalization, Other)
  Sender: FDA-Public Use
  Company Number: GB-RANBAXY-2008RR-15352

PATIENT
  Age: 63 Year
  Sex: Male
  Weight: 76 kg

DRUGS (6)
  1. SIMVASTATIN [Suspect]
     Indication: HYPERCHOLESTEROLAEMIA
     Dosage: 40 MG, QD
     Route: 048
     Dates: start: 20080314, end: 20080509
  2. SIMVASTATIN [Suspect]
     Dosage: UNK
     Dates: start: 20080617
  3. ASPIRIN [Concomitant]
     Indication: CARDIOVASCULAR EVENT PROPHYLAXIS
     Dosage: 300 MG, QD
     Route: 065
     Dates: start: 20070709
  4. BISOPROLOL FUMARATE [Concomitant]
     Indication: HYPERTENSION
     Dosage: 7.5 MG, QD
     Route: 065
     Dates: start: 20070523
  5. RAMIPRIL [Concomitant]
     Indication: HYPERTENSION
     Dosage: 10 MG, QD
     Route: 065
     Dates: start: 20070410
  6. MEBEVERINE HYDROCHLORIDE [Concomitant]
     Indication: ABDOMINAL PAIN
     Dosage: 135 MG, TID
     Route: 048
     Dates: start: 20080516

REACTIONS (6)
  - ABDOMINAL PAIN [None]
  - ANEURYSM [None]
  - AORTIC ANEURYSM [None]
  - DIARRHOEA [None]
  - TENDERNESS [None]
  - VOMITING [None]
